FAERS Safety Report 25430098 (Version 1)
Quarter: 2025Q2

REPORT INFORMATION
  Report Type: Spontaneous
  Country: CA (occurrence: CA)
  Receive Date: 20250612
  Receipt Date: 20250612
  Transmission Date: 20250716
  Serious: Yes (Life-Threatening, Hospitalization, Other)
  Sender: SANDOZ
  Company Number: CA-002147023-NVSC2023CA087935

PATIENT
  Age: 20 Year
  Sex: Female

DRUGS (26)
  1. MYCOPHENOLATE MOFETIL [Suspect]
     Active Substance: MYCOPHENOLATE MOFETIL
     Indication: Immunosuppressant drug therapy
     Route: 065
  2. MYCOPHENOLATE MOFETIL [Suspect]
     Active Substance: MYCOPHENOLATE MOFETIL
     Indication: Renal transplant
     Route: 065
  3. MYCOPHENOLATE MOFETIL [Suspect]
     Active Substance: MYCOPHENOLATE MOFETIL
     Indication: Renal transplant
  4. MYCOPHENOLATE MOFETIL [Suspect]
     Active Substance: MYCOPHENOLATE MOFETIL
     Indication: Immunosuppressant drug therapy
  5. MYCOPHENOLIC ACID [Suspect]
     Active Substance: MYCOPHENOLIC ACID
     Indication: Immunosuppressant drug therapy
     Dosage: 720 MG, BID (2 EVERY 1 DAY) (FORMULATION- ENTERIC COATED TABLET)
     Route: 065
  6. PREDNISONE [Suspect]
     Active Substance: PREDNISONE
     Indication: Immunosuppressant drug therapy
     Dosage: 40 MG, Q24H
     Route: 065
  7. BASILIXIMAB [Suspect]
     Active Substance: BASILIXIMAB
     Indication: Renal transplant
     Route: 065
  8. MYCOPHENOLATE MOFETIL [Suspect]
     Active Substance: MYCOPHENOLATE MOFETIL
     Indication: Immunosuppressant drug therapy
     Route: 065
  9. MYCOPHENOLATE SODIUM [Suspect]
     Active Substance: MYCOPHENOLATE SODIUM
     Indication: Renal transplant
     Dosage: 720 MG, BID  (1 EVERY .5 DAYS)
     Route: 065
  10. MYCOPHENOLIC ACID [Suspect]
     Active Substance: MYCOPHENOLIC ACID
     Dosage: 720 MG, BID (2 EVERY 1 DAY) (ENTERIC  COATED TABLET)
     Route: 065
  11. MYCOPHENOLIC ACID [Suspect]
     Active Substance: MYCOPHENOLIC ACID
     Indication: Immunosuppressant drug therapy
     Dosage: 72 MG, Q12H (1 IN EVERY 12 HOURS)
     Route: 065
  12. PREDNISONE [Suspect]
     Active Substance: PREDNISONE
     Indication: Renal transplant
     Dosage: 40 MG, QD (1 EVERY 1 DAYS)
     Route: 065
  13. PREDNISONE [Suspect]
     Active Substance: PREDNISONE
     Dosage: 40 MG, Q12H
     Route: 065
  14. PREDNISONE [Suspect]
     Active Substance: PREDNISONE
     Indication: Immunosuppressant drug therapy
     Route: 065
  15. PROGRAF [Suspect]
     Active Substance: TACROLIMUS
     Indication: Renal transplant
     Route: 048
  16. PROGRAF [Suspect]
     Active Substance: TACROLIMUS
     Indication: Immunosuppressant drug therapy
  17. SIMULECT [Suspect]
     Active Substance: BASILIXIMAB
     Indication: Immunosuppressant drug therapy
     Route: 042
  18. SIMULECT [Suspect]
     Active Substance: BASILIXIMAB
     Indication: Renal transplant
     Route: 065
  19. TACROLIMUS [Suspect]
     Active Substance: TACROLIMUS
     Indication: Immunosuppressant drug therapy
     Route: 065
  20. TACROLIMUS [Suspect]
     Active Substance: TACROLIMUS
     Indication: Renal transplant
     Dosage: 4 MG, BID (1 EVERY 0.5 DAYS)
     Route: 065
  21. TACROLIMUS [Suspect]
     Active Substance: TACROLIMUS
     Dosage: 4 MG, BID (2 EVERY 1 DAY)
     Route: 065
  22. PENICILLIN [Concomitant]
     Active Substance: PENICILLIN
     Indication: Prophylaxis
     Route: 065
  23. SULFAMETHOXAZOLE [Concomitant]
     Active Substance: SULFAMETHOXAZOLE
     Indication: Product used for unknown indication
     Route: 065
  24. SULFAMETHOXAZOLE AND TRIMETHOPRIM [Concomitant]
     Active Substance: SULFAMETHOXAZOLE\TRIMETHOPRIM
     Indication: Prophylaxis
     Route: 065
  25. SULFAMETHOXAZOLE AND TRIMETHOPRIM [Concomitant]
     Active Substance: SULFAMETHOXAZOLE\TRIMETHOPRIM
     Indication: Antibiotic prophylaxis
  26. TACROLIMUS [Concomitant]
     Active Substance: TACROLIMUS
     Indication: Product used for unknown indication
     Route: 065

REACTIONS (3)
  - Herpes simplex hepatitis [Recovered/Resolved]
  - Herpes simplex hepatitis [Recovered/Resolved]
  - Herpes simplex [Recovered/Resolved]
